FAERS Safety Report 15759437 (Version 1)
Quarter: 2018Q4

REPORT INFORMATION
  Report Type: Spontaneous
  Country: IT (occurrence: IT)
  Receive Date: 20181226
  Receipt Date: 20181226
  Transmission Date: 20190205
  Serious: Yes (Hospitalization, Other)
  Sender: FDA-Public Use
  Company Number: IT-AUROBINDO-AUR-APL-2018-016410

PATIENT
  Age: 54 Year
  Sex: Male

DRUGS (30)
  1. 5 FLUOROURACIL                     /00098801/ [Suspect]
     Active Substance: FLUOROURACIL
     Indication: METASTASES TO LIVER
  2. FOLINIC ACID [Suspect]
     Active Substance: LEUCOVORIN
     Indication: COLON CANCER METASTATIC
  3. IRINOTECAN [Concomitant]
     Active Substance: IRINOTECAN
     Indication: COLON CANCER METASTATIC
  4. OXALIPLATIN. [Suspect]
     Active Substance: OXALIPLATIN
     Indication: METASTASES TO LIVER
     Dosage: 85 MG/M2,QCY
     Route: 065
     Dates: start: 20170223
  5. OXALIPLATIN. [Suspect]
     Active Substance: OXALIPLATIN
     Indication: COLON CANCER METASTATIC
  6. 5 FLUOROURACIL                     /00098801/ [Suspect]
     Active Substance: FLUOROURACIL
     Indication: COLON CANCER METASTATIC
     Dosage: 3200 MG/M2,QCY
     Route: 042
     Dates: start: 20170223
  7. PREDNISONE. [Suspect]
     Active Substance: PREDNISONE
     Indication: IMMUNOSUPPRESSANT DRUG THERAPY
  8. OXALIPLATIN. [Suspect]
     Active Substance: OXALIPLATIN
     Indication: PULMONARY MASS
     Dosage: 85 MG/M2,QCY
     Route: 065
     Dates: start: 201706
  9. OXALIPLATIN. [Suspect]
     Active Substance: OXALIPLATIN
     Indication: METASTASES TO BONE
  10. 5 FLUOROURACIL                     /00098801/ [Suspect]
     Active Substance: FLUOROURACIL
     Indication: METASTASES TO BONE
     Dosage: 400 MG/M2,QCY
     Route: 040
     Dates: start: 201706
  11. BEVACIZUMAB. [Suspect]
     Active Substance: BEVACIZUMAB
     Indication: METASTASES TO LIVER
     Dosage: 5 MG/KG,QCY
     Route: 042
     Dates: start: 20170223
  12. CALCIUM                            /00060701/ [Concomitant]
     Active Substance: CALCIUM
     Indication: PULMONARY MASS
  13. BEVACIZUMAB. [Suspect]
     Active Substance: BEVACIZUMAB
     Indication: METASTASES TO BONE
  14. METHYLPREDNISOLONE. [Suspect]
     Active Substance: METHYLPREDNISOLONE
     Indication: LIMBIC ENCEPHALITIS
     Dosage: UNK
  15. BEVACIZUMAB. [Suspect]
     Active Substance: BEVACIZUMAB
     Indication: PULMONARY MASS
  16. PREDNISONE. [Suspect]
     Active Substance: PREDNISONE
     Indication: LIMBIC ENCEPHALITIS
     Dosage: 25 MG,QD
     Route: 048
  17. LEUCOVORINE [Suspect]
     Active Substance: LEUCOVORIN
     Indication: COLON CANCER METASTATIC
     Dosage: 200 MG/M2,QCY
     Route: 065
     Dates: start: 201706
  18. VITAMIN D                          /00107901/ [Concomitant]
     Active Substance: ERGOCALCIFEROL
     Indication: LUMBAR VERTEBRAL FRACTURE
     Dosage: UNK
     Route: 065
     Dates: start: 201702
  19. 5 FLUOROURACIL                     /00098801/ [Suspect]
     Active Substance: FLUOROURACIL
     Indication: PULMONARY MASS
     Dosage: 2400 MG/M2,QCY
     Route: 042
     Dates: start: 201706
  20. METHYLPREDNISOLONE. [Suspect]
     Active Substance: METHYLPREDNISOLONE
     Indication: IMMUNOSUPPRESSANT DRUG THERAPY
     Dosage: 1 GRAM, ONCE A DAY
     Route: 042
  21. PREDNISONE. [Suspect]
     Active Substance: PREDNISONE
     Indication: IMMUNOSUPPRESSANT DRUG THERAPY
     Dosage: 25 MILLIGRAM, ONCE A DAY
     Route: 048
  22. LEUCOVORINE [Suspect]
     Active Substance: LEUCOVORIN
     Dosage: 200 MG/M2,QCY
     Route: 065
     Dates: start: 20170223
  23. FOLINIC ACID [Suspect]
     Active Substance: LEUCOVORIN
     Indication: METASTASES TO LIVER
     Dosage: 200 MILLIGRAM/SQ. METER
     Route: 065
     Dates: start: 201706
  24. IRINOTECAN [Concomitant]
     Active Substance: IRINOTECAN
     Indication: METASTASES TO LIVER
     Dosage: 165 MG/M2,QCY
     Route: 065
     Dates: start: 20170223
  25. DENOSUMAB [Concomitant]
     Active Substance: DENOSUMAB
     Indication: LUMBAR VERTEBRAL FRACTURE
     Dosage: UNK
     Route: 016
     Dates: start: 201702
  26. CALCIUM                            /00060701/ [Concomitant]
     Active Substance: CALCIUM
     Indication: METASTASES TO LIVER
  27. BEVACIZUMAB. [Suspect]
     Active Substance: BEVACIZUMAB
     Indication: COLON CANCER METASTATIC
     Dosage: 5 MG/KG,QCY
     Route: 042
     Dates: start: 201706
  28. FOLINIC ACID [Suspect]
     Active Substance: LEUCOVORIN
     Indication: METASTASES TO BONE
     Dosage: 200 MILLIGRAM/SQ. METER
     Route: 065
     Dates: start: 20170223
  29. IRINOTECAN [Concomitant]
     Active Substance: IRINOTECAN
     Indication: METASTASES TO BONE
  30. CALCIUM                            /00060701/ [Concomitant]
     Active Substance: CALCIUM
     Indication: SPINAL FRACTURE
     Dosage: UNK
     Route: 065
     Dates: start: 201702

REACTIONS (15)
  - Disorientation [Recovering/Resolving]
  - Somnolence [Recovering/Resolving]
  - Speech disorder [Recovering/Resolving]
  - Therapeutic response decreased [Unknown]
  - Cognitive disorder [Recovering/Resolving]
  - Depressed level of consciousness [Recovering/Resolving]
  - Mental status changes [Recovering/Resolving]
  - Limbic encephalitis [Recovering/Resolving]
  - Hallucination [Recovering/Resolving]
  - Bradykinesia [Recovering/Resolving]
  - Amnesia [Recovering/Resolving]
  - Body temperature increased [Recovering/Resolving]
  - Psychomotor hyperactivity [Recovering/Resolving]
  - Sleep disorder [Recovering/Resolving]
  - Lethargy [Recovering/Resolving]

NARRATIVE: CASE EVENT DATE: 20170403
